FAERS Safety Report 15868260 (Version 1)
Quarter: 2019Q1

REPORT INFORMATION
  Report Type: Spontaneous
  Country: ES (occurrence: ES)
  Receive Date: 20190125
  Receipt Date: 20190125
  Transmission Date: 20190417
  Serious: Yes (Other)
  Sender: FDA-Public Use
  Company Number: ES-ALLERGAN-1902842US

PATIENT
  Age: 68 Year
  Sex: Male
  Weight: 69 kg

DRUGS (4)
  1. NAPROXENO NORMON [Concomitant]
     Indication: NECK PAIN
  2. ENALAPRIL W/HYDROCHLOROTHIAZIDE [Concomitant]
     Active Substance: ENALAPRIL\HYDROCHLOROTHIAZIDE
     Indication: HYPERTENSION
     Dosage: 1 DF(20/12.5 MG/MG) DAILY (HALF TABLET IN THE MORNING)
     Route: 048
     Dates: start: 20170904
  3. SILODOSIN - BP [Suspect]
     Active Substance: SILODOSIN
     Indication: BENIGN PROSTATIC HYPERPLASIA
     Dosage: 8 MG, QD (1 TABLET AFTER DINNER)
     Route: 048
     Dates: start: 20181218, end: 20181219
  4. NAPROXENO NORMON [Concomitant]
     Indication: HEADACHE
     Dosage: AT 500 MG AS NECESSARY (ONE TABLET OR HALF TABLET BASED ON PAIN)
     Dates: start: 20180910

REACTIONS (6)
  - Dizziness [Recovering/Resolving]
  - Diarrhoea [Recovering/Resolving]
  - Dry mouth [Recovering/Resolving]
  - Sinonasal obstruction [Recovering/Resolving]
  - Ejaculation disorder [Recovering/Resolving]
  - Insomnia [Unknown]

NARRATIVE: CASE EVENT DATE: 20181219
